FAERS Safety Report 6818253-9 (Version None)
Quarter: 2010Q3

REPORT INFORMATION
  Report Type: 
  Country: None (occurrence: None)
  Receive Date: 20100706
  Receipt Date: 20070620
  Transmission Date: 20110219
  Serious: Yes (Other)
  Sender: FDA-Public Use
  Company Number: US-PFIZER INC-2007050647

PATIENT
  Sex: Female
  Weight: 59 kg

DRUGS (7)
  1. AZITHROMYCIN [Suspect]
     Indication: EAR PAIN
     Dates: start: 20070522, end: 20070522
  2. AZITHROMYCIN [Suspect]
     Dates: start: 20070523, end: 20070527
  3. ATENOLOL [Concomitant]
     Indication: BLOOD PRESSURE
  4. FUROSEMIDE [Concomitant]
     Indication: BLOOD PRESSURE
  5. CALCIUM CARBONATE [Concomitant]
  6. ACETYLSALICYLIC ACID [Concomitant]
  7. INSULIN [Concomitant]
     Dates: start: 19510101

REACTIONS (2)
  - BLOOD GLUCOSE INCREASED [None]
  - DIARRHOEA [None]
